FAERS Safety Report 20532331 (Version 1)
Quarter: 2022Q1

REPORT INFORMATION
  Report Type: Spontaneous
  Country: US (occurrence: US)
  Receive Date: 20220301
  Receipt Date: 20220301
  Transmission Date: 20220423
  Serious: Yes (Other)
  Sender: FDA-Public Use
  Company Number: US-AMNEAL PHARMACEUTICALS-2022-AMRX-00428

PATIENT
  Age: 91 Year
  Sex: Female

DRUGS (1)
  1. COLESTIPOL HYDROCHLORIDE [Suspect]
     Active Substance: COLESTIPOL HYDROCHLORIDE
     Indication: Product used for unknown indication
     Dosage: 2 TABLETS, 2 /DAY
     Route: 048
     Dates: start: 20220118

REACTIONS (4)
  - Choking [Not Recovered/Not Resolved]
  - Retching [Not Recovered/Not Resolved]
  - Product physical issue [Unknown]
  - Product substitution issue [Unknown]

NARRATIVE: CASE EVENT DATE: 20220119
